FAERS Safety Report 4994924-4 (Version None)
Quarter: 2006Q2

REPORT INFORMATION
  Report Type: 
  Country: None (occurrence: None)
  Receive Date: 20060508
  Receipt Date: 20051017
  Transmission Date: 20061013
  Serious: Yes (Other)
  Sender: FDA-Public Use
  Company Number: PHNR2005AU01514

PATIENT
  Age: 74 Year
  Sex: Male

DRUGS (8)
  1. ZOMETA [Suspect]
     Indication: PROSTATE CANCER METASTATIC
  2. ANANDRON [Concomitant]
  3. CALCITRIOL [Concomitant]
  4. DIGOXIN [Concomitant]
  5. DEXAMETHASONE [Concomitant]
  6. WARFARIN SODIUM [Concomitant]
  7. FRUSEMIDE [Concomitant]
  8. OMEPRAZOLE [Concomitant]

REACTIONS (4)
  - ENDODONTIC PROCEDURE [None]
  - OSTEONECROSIS [None]
  - PAIN IN JAW [None]
  - TOOTH EXTRACTION [None]
